FAERS Safety Report 12115203 (Version 2)
Quarter: 2016Q1

REPORT INFORMATION
  Report Type: Spontaneous
  Country: US (occurrence: US)
  Receive Date: 20160225
  Receipt Date: 20160308
  Transmission Date: 20160526
  Serious: No
  Sender: FDA-Public Use
  Company Number: US-AMGEN-USASL2016021852

PATIENT
  Age: 37 Year
  Sex: Female

DRUGS (2)
  1. ENBREL [Suspect]
     Active Substance: ETANERCEPT
     Indication: RHEUMATOID ARTHRITIS
     Dosage: 50 MG, QWK
     Route: 065
     Dates: start: 20160112
  2. METHOTREXATE [Concomitant]
     Active Substance: METHOTREXATE
     Dosage: UNK

REACTIONS (10)
  - Nasopharyngitis [Not Recovered/Not Resolved]
  - Feeling abnormal [Unknown]
  - Viral infection [Unknown]
  - Pain [Unknown]
  - Fatigue [Unknown]
  - Device use error [Unknown]
  - Underdose [Unknown]
  - Malaise [Not Recovered/Not Resolved]
  - Influenza like illness [Unknown]
  - Fear of injection [Unknown]

NARRATIVE: CASE EVENT DATE: 2016
